FAERS Safety Report 5691744-2 (Version None)
Quarter: 2008Q1

REPORT INFORMATION
  Report Type: 
  Country: None (occurrence: None)
  Receive Date: 20080331
  Receipt Date: 20080325
  Transmission Date: 20080703
  Serious: No
  Sender: FDA-Public Use
  Company Number: 20084808

PATIENT
  Sex: Female

DRUGS (1)
  1. LIORESAL [Suspect]
     Indication: MUSCLE SPASTICITY
     Dosage: 167 MCG, DAILY, INTRATHECAL
     Route: 037

REACTIONS (4)
  - ASTHENIA [None]
  - PARAESTHESIA [None]
  - PRURITUS [None]
  - URINARY TRACT INFECTION [None]
